FAERS Safety Report 14310050 (Version 3)
Quarter: 2018Q3

REPORT INFORMATION
  Report Type: Report from Study
  Country: AU (occurrence: AU)
  Receive Date: 20171220
  Receipt Date: 20180824
  Transmission Date: 20181010
  Serious: Yes (Hospitalization, Other)
  Sender: FDA-Public Use
  Company Number: AU-ELI_LILLY_AND_COMPANY-AU201704005911

PATIENT
  Age: 67 Year
  Sex: Female

DRUGS (3)
  1. TERIPARATIDE [Suspect]
     Active Substance: TERIPARATIDE
     Dosage: 20 UG, DAILY
     Route: 065
  2. TERIPARATIDE [Suspect]
     Active Substance: TERIPARATIDE
     Indication: OSTEOPOROSIS
     Dosage: 20 UG, QD
     Route: 065
     Dates: start: 20170403
  3. PREDNISONE. [Suspect]
     Active Substance: PREDNISONE
     Indication: PRODUCT USED FOR UNKNOWN INDICATION
     Dosage: UNK, UNKNOWN
     Route: 065

REACTIONS (14)
  - Feeling abnormal [Not Recovered/Not Resolved]
  - Pain [Not Recovered/Not Resolved]
  - Syncope [Not Recovered/Not Resolved]
  - Spondylitis [Not Recovered/Not Resolved]
  - Gait disturbance [Not Recovered/Not Resolved]
  - Pain in extremity [Not Recovered/Not Resolved]
  - Headache [Not Recovered/Not Resolved]
  - Arthralgia [Not Recovered/Not Resolved]
  - General physical health deterioration [Not Recovered/Not Resolved]
  - Back injury [Not Recovered/Not Resolved]
  - Malaise [Not Recovered/Not Resolved]
  - Ankle fracture [Recovered/Resolved]
  - Blood pressure decreased [Not Recovered/Not Resolved]
  - Nerve compression [Not Recovered/Not Resolved]

NARRATIVE: CASE EVENT DATE: 20170501
